FAERS Safety Report 9984281 (Version 2)
Quarter: 2014Q1

REPORT INFORMATION
  Report Type: Report from Study
  Country: US (occurrence: US)
  Receive Date: 20140307
  Receipt Date: 20140307
  Transmission Date: 20141002
  Serious: No
  Sender: FDA-Public Use
  Company Number: US-ABBVIE-13P-163-1182355-00

PATIENT
  Age: 69 Year
  Sex: Male

DRUGS (4)
  1. HUMIRA [Suspect]
     Indication: PSORIASIS
     Dates: start: 20131219, end: 20131219
  2. HUMIRA [Suspect]
  3. UNKNOWN MEDICATION [Concomitant]
     Indication: HYPERTENSION
  4. UNKNOWN MEDICATION [Concomitant]
     Indication: GLUCOSE TOLERANCE IMPAIRED

REACTIONS (1)
  - Injection site pain [Recovered/Resolved]
